FAERS Safety Report 24344600 (Version 1)
Quarter: 2024Q3

REPORT INFORMATION
  Report Type: Spontaneous
  Country: US (occurrence: US)
  Receive Date: 20240920
  Receipt Date: 20240920
  Transmission Date: 20241017
  Serious: Yes (Other)
  Sender: BAYER
  Company Number: US-BAYER-2024A134204

PATIENT
  Age: 77 Year
  Sex: Female

DRUGS (2)
  1. MINERALS\VITAMINS [Suspect]
     Active Substance: MINERALS\VITAMINS
     Indication: Nutritional supplementation
     Dosage: 1 TABLET WITH A GLASS OF WATER
     Route: 048
  2. BAYER LOW DOSE [Suspect]
     Active Substance: ASPIRIN

REACTIONS (1)
  - Choking [Recovered/Resolved]
